FAERS Safety Report 25509168 (Version 1)
Quarter: 2025Q3

REPORT INFORMATION
  Report Type: Spontaneous
  Country: US (occurrence: None)
  Receive Date: 20250702
  Receipt Date: 20250702
  Transmission Date: 20251020
  Serious: Yes (Other)
  Sender: FDA-CTU
  Company Number: None

PATIENT
  Age: 76 Year
  Sex: Female

DRUGS (1)
  1. FLUOROURACIL [Suspect]
     Active Substance: FLUOROURACIL

REACTIONS (4)
  - Device leakage [None]
  - Drug delivery system malfunction [None]
  - Incorrect dose administered by device [None]
  - Incorrect dose administered [None]

NARRATIVE: CASE EVENT DATE: 20250702
